FAERS Safety Report 23934157 (Version 1)
Quarter: 2024Q2

REPORT INFORMATION
  Report Type: Spontaneous
  Country: RO (occurrence: RO)
  Receive Date: 20240603
  Receipt Date: 20240603
  Transmission Date: 20240716
  Serious: Yes (Other)
  Sender: FDA-Public Use
  Company Number: RO-MLMSERVICE-20240513-PI060715-00336-1

PATIENT
  Age: 39 Year
  Sex: Female

DRUGS (4)
  1. DACARBAZINE [Suspect]
     Active Substance: DACARBAZINE
     Indication: Malignant melanoma
     Dosage: UNK, EVERY 3 WEEKS
     Route: 065
  2. DACARBAZINE [Suspect]
     Active Substance: DACARBAZINE
     Indication: Leiomyosarcoma
  3. ZOLEDRONIC ACID [Suspect]
     Active Substance: ZOLEDRONIC ACID
     Indication: Leiomyosarcoma
     Dosage: UNK, CYCLIC
     Route: 065
  4. ZOLEDRONIC ACID [Suspect]
     Active Substance: ZOLEDRONIC ACID
     Indication: Malignant melanoma

REACTIONS (2)
  - Osteonecrosis of jaw [Recovering/Resolving]
  - Off label use [Unknown]
